FAERS Safety Report 7437090-8 (Version None)
Quarter: 2011Q2

REPORT INFORMATION
  Report Type: 
  Country: None (occurrence: None)
  Receive Date: 20110426
  Receipt Date: 20110413
  Transmission Date: 20111010
  Serious: Yes (Other)
  Sender: FDA-Public Use
  Company Number: PHHY2010JP52254

PATIENT
  Sex: Male
  Weight: 46 kg

DRUGS (14)
  1. NEXAVAR [Concomitant]
     Dosage: 800 MG, UNK
     Route: 048
     Dates: start: 20090707, end: 20100614
  2. LOXOPROFEN [Concomitant]
     Dosage: 120 MG, UNK
     Route: 048
     Dates: start: 20101228
  3. MAGMITT [Concomitant]
     Dosage: 1500 MG, UNK
     Route: 048
     Dates: start: 20100706
  4. MICARDIS [Concomitant]
     Dosage: 10 MG, UNK
     Route: 048
  5. AFINITOR [Suspect]
     Dosage: 5 MG
     Route: 048
     Dates: start: 20100917, end: 20110207
  6. INTERFERON ALFA [Concomitant]
     Dosage: 6000000 IU, UNK
     Route: 042
     Dates: start: 20071205, end: 20090630
  7. MICARDIS [Concomitant]
     Dosage: 20 MG, UNK
     Route: 048
     Dates: start: 20100820
  8. REBAMIPIDE [Concomitant]
     Dosage: 200 MG, UNK
     Route: 048
     Dates: start: 20101208
  9. GASTER D [Concomitant]
     Dosage: 20 MG, UNK
     Route: 048
  10. ZOMETA [Concomitant]
     Indication: METASTATIC RENAL CELL CARCINOMA
     Dosage: 4 MG, UNK
     Route: 042
     Dates: start: 20101214, end: 20101214
  11. AFINITOR [Suspect]
     Dosage: 10 MG, DAILY
     Route: 048
     Dates: start: 20110208
  12. DUROTEP [Concomitant]
     Dosage: 8.4 MG, UNK
     Route: 062
  13. AFINITOR [Suspect]
     Indication: METASTATIC RENAL CELL CARCINOMA
     Dosage: 10 MG, DAILY
     Route: 048
     Dates: start: 20100615, end: 20100803
  14. MICARDIS [Concomitant]
     Dosage: 10 MG, UNK
     Route: 048

REACTIONS (3)
  - HYPERKALAEMIA [None]
  - HERPES ZOSTER [None]
  - NEOPLASM MALIGNANT [None]
